FAERS Safety Report 14071145 (Version 2)
Quarter: 2017Q4

REPORT INFORMATION
  Report Type: Report from Study
  Country: IT (occurrence: IT)
  Receive Date: 20171010
  Receipt Date: 20171011
  Transmission Date: 20180321
  Serious: Yes (Hospitalization)
  Sender: FDA-Public Use
  Company Number: IT-TEVA-813422ACC

PATIENT
  Age: 48 Year
  Sex: Male

DRUGS (9)
  1. VENLAFAXINE HYDROCHLORIDE. [Interacting]
     Active Substance: VENLAFAXINE HYDROCHLORIDE
     Indication: DEPRESSION
     Dosage: 1 DOSAGE FORMS DAILY;
     Route: 048
  2. GABAPENTIN. [Suspect]
     Active Substance: GABAPENTIN
     Indication: EPILEPSY
     Dosage: 1 DOSAGE FORMS DAILY;
     Route: 048
  3. FENTANYL TRANSDERMAL SYSTEM [Interacting]
     Active Substance: FENTANYL
     Indication: PAIN
     Route: 003
  4. TAVOR (LORAZEPAM) [Interacting]
     Active Substance: LORAZEPAM
     Indication: ANXIETY
     Dosage: 1 DOSAGE FORMS DAILY;
     Route: 048
  5. PERGASTID - 15 MG CAPSULE RIGIDE [Concomitant]
     Indication: PRODUCT USED FOR UNKNOWN INDICATION
  6. METHADONE HYDROCHLORIDE. [Interacting]
     Active Substance: METHADONE HYDROCHLORIDE
     Indication: PAIN
     Dosage: 40 MILLIGRAM DAILY;
     Route: 048
  7. LAROXYL - 25MG COMPRESSE RIVESTITE - TEOFARMA S.R.L. [Interacting]
     Active Substance: AMITRIPTYLINE HYDROCHLORIDE
     Indication: DEPRESSION
     Dosage: 1 DOSAGE FORMS DAILY;
     Route: 048
  8. EUTIROX - 175 MICROGRAMMI COMPRESSE [Concomitant]
     Indication: PRODUCT USED FOR UNKNOWN INDICATION
  9. ORAMORPH - 10 MG/5 ML SOLUZIONE ORALE [Interacting]
     Active Substance: MORPHINE SULFATE
     Indication: PAIN
     Route: 048

REACTIONS (7)
  - Injury [Unknown]
  - Fall [Unknown]
  - Fracture [Unknown]
  - Wound [Unknown]
  - Drug interaction [Unknown]
  - Somnolence [Unknown]
  - Foot fracture [None]

NARRATIVE: CASE EVENT DATE: 20170602
